FAERS Safety Report 6250916-9 (Version None)
Quarter: 2009Q2

REPORT INFORMATION
  Report Type: 
  Country: None (occurrence: None)
  Receive Date: 20090630
  Receipt Date: 20090114
  Transmission Date: 20091009
  Serious: No
  Sender: FDA-Public Use
  Company Number: US-ABBOTT-09P-163-0498090-00

PATIENT
  Sex: Male

DRUGS (4)
  1. ZEMPLAR [Suspect]
     Indication: HYPERPARATHYROIDISM
     Dates: start: 20080611
  2. ZEMPLAR [Suspect]
  3. RENAGEL [Suspect]
     Indication: DRUG USE FOR UNKNOWN INDICATION
     Dates: start: 20081201
  4. RENAGEL [Concomitant]
     Dates: start: 20081208

REACTIONS (2)
  - CONSTIPATION [None]
  - DIZZINESS [None]
